FAERS Safety Report 25393287 (Version 1)
Quarter: 2025Q2

REPORT INFORMATION
  Report Type: Report from Study
  Country: US (occurrence: US)
  Receive Date: 20250604
  Receipt Date: 20250604
  Transmission Date: 20250717
  Serious: Yes (Other)
  Sender: ACADIA PHARMACEUTICALS
  Company Number: US-ACADIA PHARMACEUTICALS INC.-ACA-2025-PIM-006528

PATIENT
  Sex: Male

DRUGS (16)
  1. NUPLAZID [Suspect]
     Active Substance: PIMAVANSERIN TARTRATE
     Indication: Parkinson^s disease
     Dosage: 34 MILLIGRAM, QD
     Route: 048
  2. ATORVASTATIN [Concomitant]
     Active Substance: ATORVASTATIN
  3. VITAMIN B [Concomitant]
     Active Substance: VITAMIN B
  4. PROZAC [Concomitant]
     Active Substance: FLUOXETINE HYDROCHLORIDE
  5. GABAPENTIN [Concomitant]
     Active Substance: GABAPENTIN
  6. VITAMIN E [Concomitant]
     Active Substance: .ALPHA.-TOCOPHEROL
  7. VITAMIN D2 [Concomitant]
     Active Substance: ERGOCALCIFEROL
  8. OSTEO BI-FLEX [CHONDROITIN SULFATE;GLUCOSAMINE HYDROCHLORIDE] [Concomitant]
  9. CLONAZEPAM [Concomitant]
     Active Substance: CLONAZEPAM
  10. CARBIDOPA AND LEVODOPA [Concomitant]
     Active Substance: CARBIDOPA\LEVODOPA
  11. FISH OIL [Concomitant]
     Active Substance: FISH OIL
  12. METHIMAZOLE [Concomitant]
     Active Substance: METHIMAZOLE
  13. RIVASTIGMINE [Concomitant]
     Active Substance: RIVASTIGMINE
  14. COQMAX [Concomitant]
  15. SINEMET [Concomitant]
     Active Substance: CARBIDOPA\LEVODOPA
  16. HYALURONIC ACID [ASCORBIC ACID;HYALURONIC ACID] [Concomitant]

REACTIONS (5)
  - Hallucination, gustatory [Unknown]
  - Hallucination, olfactory [Unknown]
  - Hallucination, visual [Unknown]
  - Hallucination, auditory [Unknown]
  - Hallucination, tactile [Unknown]
